FAERS Safety Report 21310950 (Version 1)
Quarter: 2022Q3

REPORT INFORMATION
  Report Type: Spontaneous
  Country: US (occurrence: None)
  Receive Date: 20220909
  Receipt Date: 20220909
  Transmission Date: 20221026
  Serious: No
  Sender: FDA-Public Use
  Company Number: US-ARIS GLOBAL-202112-2254

PATIENT
  Sex: Female

DRUGS (9)
  1. OXERVATE [Suspect]
     Active Substance: CENEGERMIN-BKBJ
     Indication: Neurotrophic keratopathy
     Route: 047
     Dates: start: 20211206
  2. CALCIUM [Concomitant]
     Active Substance: CALCIUM
  3. OMEGA-3 ACIDS [Concomitant]
     Active Substance: OMEGA-3 FATTY ACIDS
  4. ESZOPICLONE [Concomitant]
     Active Substance: ESZOPICLONE
  5. VITAMIN D3 [Concomitant]
     Active Substance: CHOLECALCIFEROL
  6. ZINC [Concomitant]
     Active Substance: ZINC
  7. ASPIRIN [Concomitant]
     Active Substance: ASPIRIN
  8. GENTEAL MILD [Concomitant]
     Active Substance: HYPROMELLOSE 2910 (4000 MPA.S)
  9. TRAZODONE HCL [Concomitant]
     Active Substance: TRAZODONE HYDROCHLORIDE

REACTIONS (12)
  - Eye irritation [Unknown]
  - Dry eye [Unknown]
  - Device use issue [Unknown]
  - Rhinorrhoea [Not Recovered/Not Resolved]
  - Eye pain [Unknown]
  - Foreign body sensation in eyes [Unknown]
  - Photophobia [Not Recovered/Not Resolved]
  - Eye inflammation [Unknown]
  - Off label use [Unknown]
  - Corneal deposits [Unknown]
  - Eye irritation [Unknown]
  - Eyelid pain [Unknown]
